FAERS Safety Report 8562673-1 (Version None)
Quarter: 2012Q3

REPORT INFORMATION
  Report Type: 
  Country: None (occurrence: None)
  Receive Date: 20120802
  Receipt Date: 20120716
  Transmission Date: 20120928
  Serious: No
  Sender: FDA-Public Use
  Company Number: US-AMGEN-USASP2012044039

PATIENT
  Age: 48 Year
  Sex: Female

DRUGS (1)
  1. ENBREL [Suspect]
     Indication: RHEUMATOID ARTHRITIS
     Dosage: 50 MG, QWK
     Dates: start: 20020101, end: 20120424

REACTIONS (9)
  - RHEUMATOID ARTHRITIS [None]
  - ARTHROPOD BITE [None]
  - ACNE [None]
  - TENDONITIS [None]
  - IMPAIRED HEALING [None]
  - WRIST DEFORMITY [None]
  - TRIGGER FINGER [None]
  - ARTHROPATHY [None]
  - INFECTION [None]
